FAERS Safety Report 17733919 (Version 2)
Quarter: 2020Q2

REPORT INFORMATION
  Report Type: Spontaneous
  Country: US (occurrence: US)
  Receive Date: 20200501
  Receipt Date: 20200520
  Transmission Date: 20200714
  Serious: Yes (Other)
  Sender: FDA-Public Use
  Company Number: US-ASTRAZENECA-2020SE46452

PATIENT
  Sex: Female

DRUGS (5)
  1. OLMESARTAN MEDOXOMIL. [Concomitant]
     Active Substance: OLMESARTAN MEDOXOMIL
     Indication: BLOOD PRESSURE ABNORMAL
     Route: 048
  2. ATORVASTATIN [Concomitant]
     Active Substance: ATORVASTATIN
     Indication: DIABETES MELLITUS
     Route: 048
  3. FLUTICASONE. [Concomitant]
     Active Substance: FLUTICASONE
     Indication: NASAL CONGESTION
     Route: 045
  4. SYMBICORT [Suspect]
     Active Substance: BUDESONIDE\FORMOTEROL FUMARATE DIHYDRATE
     Indication: ASTHMA
     Dosage: 160MCG/4.5MCG, UNKNOWN FREQUENCY UNKNOWN
     Route: 055
     Dates: start: 2006
  5. CLINDOMYCIN [Concomitant]
     Active Substance: CLINDAMYCIN
     Indication: TOOTH DISCOLOURATION
     Dosage: AS REQUIRED
     Route: 048

REACTIONS (7)
  - Diabetes mellitus [Unknown]
  - Memory impairment [Unknown]
  - Device delivery system issue [Unknown]
  - Panic reaction [Unknown]
  - Suspected COVID-19 [Unknown]
  - Wrong technique in product usage process [Unknown]
  - Intentional product misuse [Unknown]
